FAERS Safety Report 25300585 (Version 1)
Quarter: 2025Q2

REPORT INFORMATION
  Report Type: Spontaneous
  Country: KR (occurrence: KR)
  Receive Date: 20250512
  Receipt Date: 20250512
  Transmission Date: 20250716
  Serious: Yes (Other)
  Sender: MERCK SHARP & DOHME LLC
  Company Number: KR-009507513-2284549

PATIENT
  Age: 42 Year
  Sex: Female

DRUGS (1)
  1. KEYTRUDA [Suspect]
     Active Substance: PEMBROLIZUMAB
     Indication: Breast cancer recurrent

REACTIONS (3)
  - Breast cancer recurrent [Unknown]
  - Immune thrombocytopenia [Unknown]
  - Autoimmune anaemia [Unknown]

NARRATIVE: CASE EVENT DATE: 20250320
